FAERS Safety Report 13607750 (Version 3)
Quarter: 2017Q4

REPORT INFORMATION
  Report Type: Report from Study
  Country: US (occurrence: US)
  Receive Date: 20170602
  Receipt Date: 20171016
  Transmission Date: 20180320
  Serious: Yes (Hospitalization, Other)
  Sender: FDA-Public Use
  Company Number: US-TAIHO ONCOLOGY INC-EU-2017-00837

PATIENT
  Age: 64 Year
  Sex: Male
  Weight: 52.5 kg

DRUGS (4)
  1. LONSURF [Suspect]
     Active Substance: TIPIRACIL HYDROCHLORIDE\TRIFLURIDINE
     Indication: COLORECTAL CANCER METASTATIC
     Route: 048
     Dates: start: 20170227, end: 201709
  2. VARUBI [Concomitant]
     Active Substance: ROLAPITANT
     Dosage: NI
  3. INSULIN HUMAN [Concomitant]
     Active Substance: INSULIN HUMAN
     Dosage: NI
  4. MORPHINE [Concomitant]
     Active Substance: MORPHINE
     Dosage: NI

REACTIONS (11)
  - Pancytopenia [Not Recovered/Not Resolved]
  - Hypotension [Recovered/Resolved]
  - Nausea [Unknown]
  - Urinary tract infection [Recovered/Resolved]
  - Bacteraemia [Recovered/Resolved]
  - Tremor [Recovered/Resolved]
  - Haemorrhage [Recovering/Resolving]
  - Oedema [Unknown]
  - Disease progression [Unknown]
  - Fall [Recovered/Resolved]
  - Abdominal pain [Unknown]

NARRATIVE: CASE EVENT DATE: 2017
